FAERS Safety Report 4716410-9 (Version None)
Quarter: 2005Q3

REPORT INFORMATION
  Report Type: 
  Country: None (occurrence: None)
  Receive Date: 20050719
  Receipt Date: 20050711
  Transmission Date: 20060218
  Serious: Yes (Disabling, Other)
  Sender: FDA-Public Use
  Company Number: GB-BOEHRINGER INGELHEIM PHARMACEUTICALS, INC.-2005-UK-01248UK

PATIENT
  Age: 78 Year
  Sex: Female
  Weight: 51 kg

DRUGS (7)
  1. SPIRIVA [Suspect]
     Indication: CHRONIC OBSTRUCTIVE PULMONARY DISEASE
     Route: 055
     Dates: start: 20050526, end: 20050602
  2. HYDROXYZINE [Concomitant]
     Indication: RASH PRURITIC
     Dosage: 25MG QDS AS REQUIRED
     Dates: start: 20041214
  3. SALBUTAMOL [Concomitant]
     Indication: CHRONIC OBSTRUCTIVE PULMONARY DISEASE
  4. IPRATROPIUM BROMIDE [Concomitant]
     Dates: start: 20050125
  5. SEREVENT [Concomitant]
     Indication: CHRONIC OBSTRUCTIVE PULMONARY DISEASE
     Dosage: 25MG TWICE DAILY
     Dates: start: 19990101
  6. FRUSEMIDE [Concomitant]
     Dosage: 40MG ONCE DAILY AS REQUIRED
     Dates: start: 20050404
  7. BECLOMETHASONE DIPROPIONATE [Concomitant]
     Indication: CHRONIC OBSTRUCTIVE PULMONARY DISEASE
     Dosage: 100MCG TWICE DAILY
     Dates: start: 20040901

REACTIONS (1)
  - POLYMYALGIA RHEUMATICA [None]
